FAERS Safety Report 13503677 (Version 1)
Quarter: 2017Q2

REPORT INFORMATION
  Report Type: Spontaneous
  Country: US (occurrence: US)
  Receive Date: 20170502
  Receipt Date: 20170502
  Transmission Date: 20170830
  Serious: Yes (Death, Hospitalization)
  Sender: FDA-Public Use
  Company Number: US-PFIZER INC-2017187460

PATIENT
  Age: 87 Year
  Sex: Male
  Weight: 59 kg

DRUGS (1)
  1. SUTENT [Suspect]
     Active Substance: SUNITINIB MALATE
     Indication: RENAL CANCER
     Dosage: 37.5 MG, 1X/DAY, ^TOTAL 37.5MG, TWO SEPARATE PILLS, BY MOUTH, ONCE PER DAY IN THE MORNING^
     Route: 048
     Dates: start: 20170313

REACTIONS (3)
  - Neoplasm progression [Fatal]
  - Cellulitis [Fatal]
  - Pyrexia [Unknown]

NARRATIVE: CASE EVENT DATE: 20170330
